FAERS Safety Report 15019823 (Version 5)
Quarter: 2018Q4

REPORT INFORMATION
  Report Type: Report from Study
  Country: CA (occurrence: CA)
  Receive Date: 20180618
  Receipt Date: 20181231
  Transmission Date: 20190204
  Serious: Yes (Other)
  Sender: FDA-Public Use
  Company Number: CA-BRISTOL-MYERS SQUIBB COMPANY-BMS-2017-037733

PATIENT
  Age: 65 Year
  Sex: Female

DRUGS (4)
  1. TYLENOL [Concomitant]
     Active Substance: ACETAMINOPHEN
     Indication: PRODUCT USED FOR UNKNOWN INDICATION
     Dosage: UNK
     Route: 065
  2. VITAMIN D                          /00107901/ [Concomitant]
     Active Substance: ERGOCALCIFEROL
     Indication: PRODUCT USED FOR UNKNOWN INDICATION
     Dosage: UNK
     Route: 065
  3. ABATACEPT [Suspect]
     Active Substance: ABATACEPT
     Indication: RHEUMATOID ARTHRITIS
     Dosage: 500 MG, Q4WK
     Route: 042
     Dates: start: 201504
  4. CALCIUM [Concomitant]
     Active Substance: CALCIUM
     Indication: PRODUCT USED FOR UNKNOWN INDICATION
     Dosage: UNK
     Route: 065

REACTIONS (18)
  - Paranasal sinus discomfort [Not Recovered/Not Resolved]
  - Rhinorrhoea [Not Recovered/Not Resolved]
  - Eye swelling [Unknown]
  - Eye pruritus [Unknown]
  - Choking [Unknown]
  - Swelling of eyelid [Not Recovered/Not Resolved]
  - Fatigue [Recovering/Resolving]
  - Sinus congestion [Not Recovered/Not Resolved]
  - Arthralgia [Not Recovered/Not Resolved]
  - Eye irritation [Recovered/Resolved]
  - Skin lesion [Not Recovered/Not Resolved]
  - Dysphagia [Unknown]
  - Dry throat [Unknown]
  - Rash [Unknown]
  - Eczema [Not Recovered/Not Resolved]
  - Allergic sinusitis [Recovered/Resolved]
  - Eye infection [Recovering/Resolving]
  - Cough [Not Recovered/Not Resolved]

NARRATIVE: CASE EVENT DATE: 20170104
